FAERS Safety Report 6124764-4 (Version None)
Quarter: 2009Q1

REPORT INFORMATION
  Report Type: 
  Country: None (occurrence: None)
  Receive Date: 20090319
  Receipt Date: 20090310
  Transmission Date: 20090719
  Serious: Yes (Death, Hospitalization)
  Sender: FDA-Public Use
  Company Number: FR-PFIZER INC-2009180251

PATIENT

DRUGS (10)
  1. CAMPTOSAR [Suspect]
     Indication: INTESTINAL ADENOCARCINOMA
     Dosage: EVERY 2 WEEKS
     Route: 042
     Dates: start: 20081127, end: 20081211
  2. ERBITUX [Suspect]
     Indication: INTESTINAL ADENOCARCINOMA
     Dosage: EVERY 2 WEEKS
     Route: 042
     Dates: start: 20081127, end: 20081211
  3. ERBITUX [Suspect]
     Dosage: UNK
     Dates: start: 20081211
  4. LEVOTHYROXINE SODIUM [Concomitant]
     Dosage: 100 UG PER DAY
  5. ODRIK [Concomitant]
     Dosage: 2MG PER DAY
  6. FLECAINE [Concomitant]
     Dosage: 100 MG PER DAY
  7. DIGOXIN [Concomitant]
     Dosage: 0.125 MG PER DAY
  8. FUROSEMIDE [Concomitant]
     Dosage: 20 MG PER DAY
  9. KARDEGIC [Concomitant]
     Dosage: 75 MG
  10. NEXIUM [Concomitant]
     Dosage: 20 MG PER DAY

REACTIONS (1)
  - RECTAL PERFORATION [None]
